FAERS Safety Report 15722711 (Version 2)
Quarter: 2018Q4

REPORT INFORMATION
  Report Type: Spontaneous
  Country: AU (occurrence: AU)
  Receive Date: 20181214
  Receipt Date: 20181218
  Transmission Date: 20190205
  Serious: Yes (Hospitalization, Other)
  Sender: FDA-Public Use
  Company Number: AU-ROCHE-2227925

PATIENT
  Age: 77 Year
  Sex: Male

DRUGS (6)
  1. PRADAXA [Suspect]
     Active Substance: DABIGATRAN ETEXILATE MESYLATE
     Indication: ATRIAL FIBRILLATION
     Route: 065
  2. ATORVASTATIN [Concomitant]
     Active Substance: ATORVASTATIN
     Indication: HYPERCHOLESTEROLAEMIA
  3. ACTILYSE [Suspect]
     Active Substance: ALTEPLASE
     Indication: ISCHAEMIC STROKE
     Route: 040
  4. DIGOXIN. [Concomitant]
     Active Substance: DIGOXIN
     Indication: ATRIAL FIBRILLATION
  5. ENALAPRIL [Concomitant]
     Active Substance: ENALAPRIL
     Indication: HYPERTENSION
  6. METOPROLOL. [Concomitant]
     Active Substance: METOPROLOL
     Indication: HYPERTENSION

REACTIONS (17)
  - Angioedema [Unknown]
  - Dysarthria [Unknown]
  - Hemiparesis [Unknown]
  - Hemianopia [Unknown]
  - Activated partial thromboplastin time prolonged [Unknown]
  - Embolic stroke [Unknown]
  - Facial paralysis [Recovering/Resolving]
  - Somnolence [Unknown]
  - Quadrantanopia [Recovering/Resolving]
  - Dizziness [Unknown]
  - Hypertension [Unknown]
  - Hypercholesterolaemia [Unknown]
  - Transient ischaemic attack [Unknown]
  - Facial paralysis [Unknown]
  - Muscular weakness [Recovered/Resolved]
  - Ventricular tachycardia [Unknown]
  - Partial seizures [Unknown]
